FAERS Safety Report 8053309-7 (Version None)
Quarter: 2012Q1

REPORT INFORMATION
  Report Type: 
  Country: None (occurrence: None)
  Receive Date: 20120118
  Receipt Date: 20120112
  Transmission Date: 20120608
  Serious: Yes (Death)
  Sender: FDA-Public Use
  Company Number: US-ROCHE-1030944

PATIENT
  Sex: Female
  Weight: 70.37 kg

DRUGS (4)
  1. ALLOPURINOL [Concomitant]
  2. PREDNISONE [Concomitant]
  3. ACTEMRA [Suspect]
     Indication: RHEUMATOID ARTHRITIS
     Dosage: LAST DOSE PRIOR TO SAE: 14/SEP/2011
     Route: 042
     Dates: start: 20110106
  4. OXYCODONE HCL [Concomitant]

REACTIONS (1)
  - DEATH [None]
